FAERS Safety Report 8123925-2 (Version None)
Quarter: 2012Q1

REPORT INFORMATION
  Report Type: 
  Country: None (occurrence: None)
  Receive Date: 20120209
  Receipt Date: 20120201
  Transmission Date: 20120608
  Serious: Yes (Other)
  Sender: FDA-Public Use
  Company Number: SE-AMGEN-SWECT2012007750

PATIENT
  Age: 66 Year
  Sex: Female

DRUGS (3)
  1. ETANERCEPT [Suspect]
     Indication: PSORIASIS
     Dosage: UNK
     Dates: start: 20010518
  2. ETANERCEPT [Suspect]
     Indication: RHEUMATOID ARTHRITIS
  3. WARFARIN SODIUM [Concomitant]
     Dosage: UNK
     Route: 065

REACTIONS (1)
  - RESPIRATORY DISORDER [None]
